FAERS Safety Report 17126126 (Version 3)
Quarter: 2023Q4

REPORT INFORMATION
  Report Type: Other
  Country: CA (occurrence: None)
  Receive Date: 20191209
  Receipt Date: 20231120
  Transmission Date: 20240109
  Serious: Yes (Hospitalization, Other)
  Sender: FDA-Public Use
  Company Number: CA-ROCHE-1619397

PATIENT
  Age: 17 Year
  Sex: Female

DRUGS (18)
  1. ACTEMRA [Suspect]
     Active Substance: TOCILIZUMAB
     Indication: Juvenile idiopathic arthritis
     Dosage: 400MG/20ML
     Route: 042
     Dates: start: 20150205, end: 20150402
  2. ACTEMRA [Suspect]
     Active Substance: TOCILIZUMAB
     Route: 042
     Dates: start: 20150430, end: 20150430
  3. ACTEMRA [Suspect]
     Active Substance: TOCILIZUMAB
     Route: 042
     Dates: start: 20150528, end: 20150528
  4. ACTEMRA [Suspect]
     Active Substance: TOCILIZUMAB
     Route: 042
     Dates: start: 20150626, end: 20150917
  5. ACTEMRA [Suspect]
     Active Substance: TOCILIZUMAB
     Route: 042
     Dates: start: 20151029, end: 20160303
  6. ACTEMRA [Suspect]
     Active Substance: TOCILIZUMAB
     Route: 042
     Dates: start: 20160406, end: 20160722
  7. ACTEMRA [Suspect]
     Active Substance: TOCILIZUMAB
     Route: 042
     Dates: start: 20160819
  8. ACTEMRA [Suspect]
     Active Substance: TOCILIZUMAB
     Route: 042
     Dates: start: 20210301
  9. FOLIC ACID [Concomitant]
     Active Substance: FOLIC ACID
     Route: 048
  10. FOLIC ACID [Concomitant]
     Active Substance: FOLIC ACID
     Route: 048
  11. ALDACTAZIDE [Concomitant]
     Active Substance: HYDROCHLOROTHIAZIDE\SPIRONOLACTONE
     Route: 048
  12. ENALAPRIL [Concomitant]
     Active Substance: ENALAPRIL
     Route: 048
  13. ASPIRIN [Concomitant]
     Active Substance: ASPIRIN
  14. LASIX [Concomitant]
     Active Substance: FUROSEMIDE
     Route: 048
  15. METHOTREXATE [Concomitant]
     Active Substance: METHOTREXATE
     Route: 058
  16. BUDESONIDE [Concomitant]
     Active Substance: BUDESONIDE
     Route: 048
  17. CALCIUM [Concomitant]
     Active Substance: CALCIUM
  18. INTRAUTERINE DEVICE (CONTRACEPTIVE) (UNK INGREDIENTS) [Concomitant]

REACTIONS (16)
  - Varicella [Unknown]
  - Pyrexia [Unknown]
  - Streptococcal sepsis [Unknown]
  - Pneumonia [Recovered/Resolved]
  - Cough [Unknown]
  - Rhinorrhoea [Unknown]
  - Ear pain [Unknown]
  - Oropharyngeal pain [Unknown]
  - Dyspnoea [Unknown]
  - Dyspnoea exertional [Recovered/Resolved]
  - C-reactive protein increased [Unknown]
  - Arthritis [Unknown]
  - Fatigue [Not Recovered/Not Resolved]
  - Arthralgia [Not Recovered/Not Resolved]
  - Ear infection [Unknown]
  - Headache [Unknown]

NARRATIVE: CASE EVENT DATE: 20160201
